FAERS Safety Report 6715234-0 (Version None)
Quarter: 2010Q2

REPORT INFORMATION
  Report Type: 
  Country: None (occurrence: None)
  Receive Date: 20100507
  Receipt Date: 20100430
  Transmission Date: 20101027
  Serious: Yes (Congenital Anomaly, Other)
  Sender: FDA-Public Use
  Company Number: US-PFIZER INC-2010055758

PATIENT
  Sex: Female

DRUGS (3)
  1. VIRACEPT [Suspect]
     Dosage: 4 DF, 1X/DAY
     Route: 048
  2. COMBIVIR [Suspect]
     Dosage: 2 DF, 1X/DAY
     Route: 048
  3. KALETRA [Suspect]
     Dosage: 6 DF, 1X/DAY
     Route: 048

REACTIONS (3)
  - ATRIOVENTRICULAR BLOCK COMPLETE [None]
  - CONGESTIVE CARDIOMYOPATHY [None]
  - DRUG EXPOSURE DURING PREGNANCY [None]
